FAERS Safety Report 22257435 (Version 5)
Quarter: 2023Q2

REPORT INFORMATION
  Report Type: Report from Study
  Country: NL (occurrence: NL)
  Receive Date: 20230427
  Receipt Date: 20230526
  Transmission Date: 20230722
  Serious: Yes (Life-Threatening, Hospitalization, Other)
  Sender: FDA-Public Use
  Company Number: NL-ABBVIE-4743110

PATIENT
  Age: 65 Year
  Sex: Female

DRUGS (17)
  1. CARBIDOPA\LEVODOPA [Suspect]
     Active Substance: CARBIDOPA\LEVODOPA
     Indication: Parkinson^s disease
     Dosage: MD: 11.0ML, CD: 5.2ML/H, ED: 4.5ML, CND: 3.9ML/H, END: 2.0ML
     Route: 050
  2. CARBIDOPA\LEVODOPA [Suspect]
     Active Substance: CARBIDOPA\LEVODOPA
     Dosage: ND: 0.0 ML, CND: 2.8 ML/H, END: 2.0 ML?REMAINS AT 16 HOURS
     Route: 050
  3. CARBIDOPA\LEVODOPA [Suspect]
     Active Substance: CARBIDOPA\LEVODOPA
     Dosage: CD: 4.1 ML/H
     Route: 050
  4. CARBIDOPA\LEVODOPA [Suspect]
     Active Substance: CARBIDOPA\LEVODOPA
     Dosage: DURATION TEXT: REMAINS AT 16 HOURS
     Route: 050
  5. CARBIDOPA\LEVODOPA [Suspect]
     Active Substance: CARBIDOPA\LEVODOPA
     Dosage: MD: 8.0 ML, CD: 3.7 ML/H, ED: 2.5 ML
     Route: 050
  6. CARBIDOPA\LEVODOPA [Suspect]
     Active Substance: CARBIDOPA\LEVODOPA
     Dosage: MD: 8.0 ML, CD: 3.7 ML/H, ED: 2.5 ML?GOES TO 24 HOURS
     Route: 050
  7. CARBIDOPA\LEVODOPA [Suspect]
     Active Substance: CARBIDOPA\LEVODOPA
     Dosage: ND: 0.0 ML, CND: 2.8 ML/H, END: 2.0 ML?DURATION TEXT: GOES TO 24 HOURS
     Route: 050
  8. CARBIDOPA\LEVODOPA [Suspect]
     Active Substance: CARBIDOPA\LEVODOPA
     Dosage: ND: 0.0 ML, CND: 2.8 ML/H, END: 2.0 ML
     Route: 050
  9. CARBIDOPA\LEVODOPA [Suspect]
     Active Substance: CARBIDOPA\LEVODOPA
     Dosage: MD: 11.0 ML, CD: 3.7 ML/H, ED: 2.5 ML, DURATION TEXT: REMAINS AT 16 HOURS
     Route: 050
  10. CARBIDOPA\LEVODOPA [Suspect]
     Active Substance: CARBIDOPA\LEVODOPA
     Dosage: MD: 11.0 ML, CD: 4.5 ML/H, ED: 3.0 ML?REMAINS AT 16 HOURS
     Route: 050
  11. CARBIDOPA\LEVODOPA [Suspect]
     Active Substance: CARBIDOPA\LEVODOPA
     Dosage: MD: 8.0 ML, CD: 2.8 ML/H, ED: 2.0 ML  ?REMAINS AT 16 HOURS
     Route: 050
     Dates: start: 20220913
  12. CARBIDOPA\LEVODOPA [Suspect]
     Active Substance: CARBIDOPA\LEVODOPA
     Dosage: MD: 11.0 ML, CD: 4.5 ML/H, ED: 3.0 ML
     Route: 050
  13. CARBIDOPA\LEVODOPA [Suspect]
     Active Substance: CARBIDOPA\LEVODOPA
     Dosage: CD: 4.1 ML/H,  DURATION TEXT: REMAINS AT 16 HOURS
     Route: 050
  14. CARBIDOPA\LEVODOPA [Suspect]
     Active Substance: CARBIDOPA\LEVODOPA
     Dosage: MD: 11.0 ML, CD: 3.7 ML/H, ED: 2.5 ML
     Route: 050
  15. CARBIDOPA\LEVODOPA [Suspect]
     Active Substance: CARBIDOPA\LEVODOPA
     Dosage: CD: 4.1 ML/H REMAINS AT 16 HOURS
     Route: 050
  16. POLYETHYLENE GLYCOLS [Concomitant]
     Active Substance: POLYETHYLENE GLYCOLS
     Indication: Bowel movement irregularity
     Route: 065
  17. MOVICOLON [Concomitant]
     Active Substance: POLYETHYLENE GLYCOL 3350\POTASSIUM CHLORIDE\SODIUM BICARBONATE\SODIUM CHLORIDE
     Indication: Bowel movement irregularity
     Route: 065

REACTIONS (9)
  - Resuscitation [Recovered/Resolved]
  - Pneumonia [Not Recovered/Not Resolved]
  - Oxygen saturation decreased [Not Recovered/Not Resolved]
  - Pyrexia [Not Recovered/Not Resolved]
  - C-reactive protein increased [Recovering/Resolving]
  - Cardiac arrest [Recovered/Resolved]
  - On and off phenomenon [Not Recovered/Not Resolved]
  - Dyskinesia [Not Recovered/Not Resolved]
  - Bowel movement irregularity [Recovered/Resolved]

NARRATIVE: CASE EVENT DATE: 20230101
